FAERS Safety Report 15467339 (Version 1)
Quarter: 2018Q4

REPORT INFORMATION
  Report Type: Spontaneous
  Country: US (occurrence: US)
  Receive Date: 20181005
  Receipt Date: 20181005
  Transmission Date: 20190204
  Serious: No
  Sender: FDA-Public Use
  Company Number: US-ASTRAZENECA-2018SF25347

PATIENT
  Sex: Female
  Weight: 64.4 kg

DRUGS (1)
  1. DALIRESP [Suspect]
     Active Substance: ROFLUMILAST
     Route: 048
     Dates: start: 20180917

REACTIONS (7)
  - Headache [Unknown]
  - Feeling abnormal [Unknown]
  - Back pain [Unknown]
  - Sneezing [Unknown]
  - Cough [Unknown]
  - Off label use [Unknown]
  - Dizziness [Unknown]
